FAERS Safety Report 9180587 (Version 3)
Quarter: 2013Q2

REPORT INFORMATION
  Report Type: Spontaneous
  Country: US (occurrence: None)
  Receive Date: 20130320
  Receipt Date: 20130402
  Transmission Date: 20140414
  Serious: Yes (Hospitalization, Other)
  Sender: FDA-Public Use
  Company Number: ADR-2013-00460

PATIENT
  Sex: Male

DRUGS (3)
  1. BACLOFEN INTRATHECAL [Suspect]
     Indication: PAIN
  2. BUPIVACAINE [Concomitant]
  3. MORPHINE [Concomitant]

REACTIONS (4)
  - Malaise [None]
  - Cardiac disorder [None]
  - Staphylococcal infection [None]
  - Anaemia [None]
